FAERS Safety Report 16623688 (Version 1)
Quarter: 2019Q3

REPORT INFORMATION
  Report Type: Spontaneous
  Country: US (occurrence: US)
  Receive Date: 20190724
  Receipt Date: 20190724
  Transmission Date: 20191004
  Serious: Yes (Disabling, Other)
  Sender: FDA-Public Use
  Company Number: US-DRREDDYS-USA/USA/19/0112264

PATIENT
  Sex: Female

DRUGS (1)
  1. CIPROFLOXACIN. [Suspect]
     Active Substance: CIPROFLOXACIN
     Indication: PRODUCT USED FOR UNKNOWN INDICATION
     Route: 065

REACTIONS (13)
  - Nausea [Unknown]
  - Nerve injury [Unknown]
  - Gait disturbance [Unknown]
  - Tremor [Unknown]
  - Fatigue [Unknown]
  - Dysstasia [Unknown]
  - Urinary incontinence [Unknown]
  - Headache [Unknown]
  - Nervous system disorder [Unknown]
  - Pain [Unknown]
  - Aortic aneurysm [Unknown]
  - Hyperhidrosis [Unknown]
  - Insomnia [Unknown]
